FAERS Safety Report 8835749 (Version 1)
Quarter: 2012Q4

REPORT INFORMATION
  Report Type: 
  Country: ZA (occurrence: ZA)
  Receive Date: 20121011
  Receipt Date: 20121011
  Transmission Date: 20130627
  Serious: Yes (Other)
  Sender: FDA-Public Use
  Company Number: PHHY2012ZA088885

PATIENT
  Sex: Female

DRUGS (1)
  1. CO-ZOMEVEK [Suspect]
     Dosage: 1 DF, (160 mg vals and 12.5 mg hct))

REACTIONS (7)
  - Cerebrovascular accident [Unknown]
  - Ear congestion [Unknown]
  - Hypoaesthesia [Unknown]
  - Feeling abnormal [Unknown]
  - Limb discomfort [Unknown]
  - Dizziness [Unknown]
  - Hypertension [Unknown]
